FAERS Safety Report 4507150-X (Version None)
Quarter: 2004Q4

REPORT INFORMATION
  Report Type: 
  Country: None (occurrence: None)
  Receive Date: 20041117
  Receipt Date: 20041101
  Transmission Date: 20050328
  Serious: Yes (Other)
  Sender: FDA-Public Use
  Company Number: 601618

PATIENT
  Age: 61 Year
  Sex: Male

DRUGS (4)
  1. ADVATE (ANTIHEMOPHILIC FACTOR (RECOMBINANT), PLASMA/ALBUMIN FREE METHO [Suspect]
     Indication: PROPHYLAXIS
     Dosage: 41000 IU; PRN; INTRAVENOUS
     Route: 042
     Dates: start: 20041028, end: 20041031
  2. PANTOZOL [Concomitant]
  3. VOLTEREN [Concomitant]
  4. FERRUM H [Concomitant]

REACTIONS (2)
  - HYPERSENSITIVITY [None]
  - SWELLING FACE [None]
